FAERS Safety Report 18302057 (Version 1)
Quarter: 2020Q3

REPORT INFORMATION
  Report Type: Spontaneous
  Country: NL (occurrence: NL)
  Receive Date: 20200923
  Receipt Date: 20200923
  Transmission Date: 20201103
  Serious: Yes (Life-Threatening, Hospitalization)
  Sender: FDA-Public Use
  Company Number: NL-009507513-2009NLD007156

PATIENT
  Age: 70 Year
  Sex: Male

DRUGS (14)
  1. ERTAPENEM SODIUM [Suspect]
     Active Substance: ERTAPENEM SODIUM
     Indication: INFECTION
     Dosage: 3 TIMES PER WEEK 1 PIECE (S), EXTRA INFO: NA DIALYSE (HD PAT)
     Route: 042
     Dates: start: 20150526, end: 20150626
  2. CALCIUM CARBONATE. [Concomitant]
     Active Substance: CALCIUM CARBONATE
     Dosage: START/STOPDATE NOT ENTERED, 3DD1
     Route: 048
  3. ESOMEPRAZOLE. [Concomitant]
     Active Substance: ESOMEPRAZOLE MAGNESIUM
     Dosage: START/STOPDATE NOT ENTERED, 1DD1
     Route: 048
  4. VITAMINS (UNSPECIFIED) [Concomitant]
     Active Substance: VITAMINS
     Dosage: START/STOPDATE NOT ENTERED, DOSAGE NOT ENTERED
     Route: 048
  5. CHLORHEXIDINE GLUCONATE. [Concomitant]
     Active Substance: CHLORHEXIDINE GLUCONATE
     Dosage: START/STOPDATE NOT ENTERED, DOSAGE NOT ENTERED
     Route: 048
  6. HYDROXOCOBALAMIN [Concomitant]
     Active Substance: HYDROXOCOBALAMIN
     Dosage: START/STOPDATE NOT ENTERED, ONCE PER 3 MONTHS 1000 MICROGRAM
     Route: 065
  7. MOVICOLON [Concomitant]
     Active Substance: POLYETHYLENE GLYCOL 3350\POTASSIUM CHLORIDE\SODIUM BICARBONATE\SODIUM CHLORIDE
     Dosage: START/STOPDATE NOT ENTERED
     Route: 048
  8. CINACALCET. [Concomitant]
     Active Substance: CINACALCET
     Dosage: START/STOPDATE NOT ENTERED, 1DD1
     Route: 048
  9. NUTRICIA RENILON [Concomitant]
     Active Substance: CARBOHYDRATES\FATTY ACIDS\MINERALS\PROTEIN\VITAMINS
     Dosage: START/STOPDATE NOT ENTERED, 3DD7, 5 MG
     Route: 048
  10. AMLODIPINE [Concomitant]
     Active Substance: AMLODIPINE BESYLATE
     Dosage: START/STOPDATE NOT ENTERED, DOSAGE NOT ENTERED
     Route: 048
  11. CHOLECALCIFEROL [Concomitant]
     Active Substance: CHOLECALCIFEROL
     Dosage: START/STOPDATE NOT ENTERED, ONCE PER 4 WEEKS 50.00 IU
     Route: 048
  12. DARBEPOETIN ALFA [Concomitant]
     Active Substance: DARBEPOETIN ALFA
     Dosage: ON THURSDAY 60 IU
     Route: 065
  13. SEVELAMER [Concomitant]
     Active Substance: SEVELAMER
     Dosage: START/STOPDATE NOT ENTERED, 3DD1
     Route: 048
  14. OXAZEPAM. [Concomitant]
     Active Substance: OXAZEPAM
     Dosage: START/STOPDATE NOT ENTERED, AT DIALYSIS
     Route: 065

REACTIONS (1)
  - Epilepsy [Recovering/Resolving]

NARRATIVE: CASE EVENT DATE: 20150626
